FAERS Safety Report 15179756 (Version 4)
Quarter: 2018Q3

REPORT INFORMATION
  Report Type: Report from Study
  Country: CA (occurrence: CA)
  Receive Date: 20180723
  Receipt Date: 20180807
  Transmission Date: 20181010
  Serious: No
  Sender: FDA-Public Use
  Company Number: CA-ROCHE-2155752

PATIENT
  Age: 51 Year
  Sex: Male

DRUGS (6)
  1. SOLU?MEDROL [Concomitant]
     Active Substance: METHYLPREDNISOLONE SODIUM SUCCINATE
     Route: 065
     Dates: start: 20180713
  2. OCREVUS [Suspect]
     Active Substance: OCRELIZUMAB
     Indication: RELAPSING-REMITTING MULTIPLE SCLEROSIS
     Dosage: 300 MG DAY 1, 15 THEN EVERY 6 MONTHS
     Route: 042
     Dates: start: 20180713
  3. TYLENOL [Concomitant]
     Active Substance: ACETAMINOPHEN
     Route: 065
     Dates: start: 20180713
  4. NORMAL SALINE [Concomitant]
     Active Substance: SODIUM CHLORIDE
     Dosage: 100 CC
     Route: 065
     Dates: start: 20180713
  5. OCREVUS [Suspect]
     Active Substance: OCRELIZUMAB
     Dosage: INFUSION NO. 2
     Route: 042
     Dates: start: 20180727
  6. BENADRYL [Concomitant]
     Active Substance: DIPHENHYDRAMINE HYDROCHLORIDE
     Route: 048
     Dates: start: 20180713

REACTIONS (5)
  - Diarrhoea [Unknown]
  - Labyrinthitis [Recovered/Resolved]
  - Dysgeusia [Not Recovered/Not Resolved]
  - Infusion related reaction [Not Recovered/Not Resolved]
  - Chest discomfort [Unknown]

NARRATIVE: CASE EVENT DATE: 20180713
